FAERS Safety Report 10709349 (Version 1)
Quarter: 2015Q1

REPORT INFORMATION
  Report Type: Spontaneous
  Country: US (occurrence: US)
  Receive Date: 20150114
  Receipt Date: 20150114
  Transmission Date: 20150721
  Serious: Yes (Hospitalization)
  Sender: FDA-Public Use
  Company Number: US-AUROBINDO-AUR-APL-2015-00173

PATIENT
  Age: 67 Year
  Sex: Female

DRUGS (4)
  1. XALKORI [Suspect]
     Active Substance: CRIZOTINIB
     Indication: LUNG NEOPLASM MALIGNANT
     Dosage: 200 MG, TWO TIMES A DAY
     Route: 065
     Dates: start: 20140918
  2. CARAFATE [Suspect]
     Active Substance: SUCRALFATE
     Indication: PRODUCT USED FOR UNKNOWN INDICATION
     Dosage: 1LT/10 ML, AS NECESSARY
     Route: 065
     Dates: start: 20140611
  3. ASPIRIN. [Suspect]
     Active Substance: ASPIRIN
     Indication: PRODUCT USED FOR UNKNOWN INDICATION
     Dosage: 81 MG, UNK
     Route: 065
  4. HYDROCHLOROTHIAZIDE 12.5 MG, HERITAGE PHARMACY [Suspect]
     Active Substance: HYDROCHLOROTHIAZIDE
     Indication: PRODUCT USED FOR UNKNOWN INDICATION
     Dosage: 12.5 MG, UNK
     Route: 065
     Dates: start: 2007

REACTIONS (5)
  - Lung neoplasm malignant [None]
  - Anaplastic lymphoma kinase gene mutation [None]
  - Thoracostomy [Unknown]
  - Drain removal [Unknown]
  - Biopsy [Unknown]

NARRATIVE: CASE EVENT DATE: 20140729
